FAERS Safety Report 6903191-3 (Version None)
Quarter: 2010Q3

REPORT INFORMATION
  Report Type: 
  Country: None (occurrence: None)
  Receive Date: 20100803
  Receipt Date: 20080715
  Transmission Date: 20110219
  Serious: No
  Sender: FDA-Public Use
  Company Number: US-PFIZER INC-2008058701

PATIENT
  Sex: Female
  Weight: 68.2 kg

DRUGS (4)
  1. LYRICA [Suspect]
     Indication: FIBROMYALGIA
     Route: 048
     Dates: start: 20071001
  2. SYNTHROID [Concomitant]
     Indication: THYROID DISORDER
  3. PAXIL [Concomitant]
  4. CYMBALTA [Concomitant]

REACTIONS (2)
  - HYPOTHYROIDISM [None]
  - PAIN [None]
